FAERS Safety Report 8393969-4 (Version None)
Quarter: 2012Q2

REPORT INFORMATION
  Report Type: 
  Country: None (occurrence: None)
  Receive Date: 20120517
  Receipt Date: 20120508
  Transmission Date: 20120825
  Serious: Yes (Hospitalization)
  Sender: FDA-Public Use
  Company Number: 2012SP024672

PATIENT
  Age: 62 Year
  Sex: Female
  Weight: 64 kg

DRUGS (11)
  1. TELAVIC (ANTIVIRALS NOS) [Suspect]
     Indication: HEPATITIS C
     Dosage: 1500 MG;QD;PO 1000 MG;QD;PO
     Route: 048
     Dates: start: 20120221, end: 20120301
  2. TELAVIC (ANTIVIRALS NOS) [Suspect]
     Indication: HEPATITIS C
     Dosage: 1500 MG;QD;PO 1000 MG;QD;PO
     Route: 048
     Dates: start: 20120106, end: 20120220
  3. PEG-INTRON [Suspect]
     Indication: HEPATITIS C
     Dosage: 100 MCG;QW;SC 80 MCG;QW;SC 100 MCG;QW;SC
     Route: 058
     Dates: start: 20120315
  4. PEG-INTRON [Suspect]
     Indication: HEPATITIS C
     Dosage: 100 MCG;QW;SC 80 MCG;QW;SC 100 MCG;QW;SC
     Route: 058
     Dates: start: 20120106, end: 20120222
  5. PEG-INTRON [Suspect]
     Indication: HEPATITIS C
     Dosage: 100 MCG;QW;SC 80 MCG;QW;SC 100 MCG;QW;SC
     Route: 058
     Dates: start: 20120223, end: 20120229
  6. REBETOL [Suspect]
     Indication: HEPATITIS C
     Dosage: 600 MG;QD;PO 200 MG;QD;PO 400 MG;QD;PO
     Route: 048
     Dates: start: 20120216, end: 20120301
  7. REBETOL [Suspect]
     Indication: HEPATITIS C
     Dosage: 600 MG;QD;PO 200 MG;QD;PO 400 MG;QD;PO
     Route: 048
     Dates: start: 20120322
  8. REBETOL [Suspect]
     Indication: HEPATITIS C
     Dosage: 600 MG;QD;PO 200 MG;QD;PO 400 MG;QD;PO
     Route: 048
     Dates: start: 20120106, end: 20120215
  9. TALION [Concomitant]
  10. PLAS-AMINO [Concomitant]
  11. ZOLPIDEM [Concomitant]

REACTIONS (3)
  - DECREASED APPETITE [None]
  - NAUSEA [None]
  - BRONCHITIS [None]
